FAERS Safety Report 16466223 (Version 3)
Quarter: 2019Q3

REPORT INFORMATION
  Report Type: Spontaneous
  Country: US (occurrence: US)
  Receive Date: 20190621
  Receipt Date: 20190902
  Transmission Date: 20191004
  Serious: Yes (Other)
  Sender: FDA-Public Use
  Company Number: US-PFIZER INC-2016517428

PATIENT
  Age: 54 Year
  Sex: Female
  Weight: 82 kg

DRUGS (2)
  1. LYRICA [Suspect]
     Active Substance: PREGABALIN
     Indication: NEURALGIA
     Dosage: 75 MG, UNK (6 X DAY )
     Route: 048
  2. LYRICA [Suspect]
     Active Substance: PREGABALIN
     Indication: BACK PAIN
     Dosage: 75 MG, UNK [5 - 6 TIMES A DAY]
     Route: 048
     Dates: start: 2005

REACTIONS (8)
  - Off label use [Unknown]
  - Oropharyngeal pain [Unknown]
  - Nasopharyngitis [Unknown]
  - Fall [Unknown]
  - Loss of personal independence in daily activities [Unknown]
  - Cough [Unknown]
  - Foot fracture [Not Recovered/Not Resolved]
  - Sneezing [Unknown]

NARRATIVE: CASE EVENT DATE: 2005
